FAERS Safety Report 6792643-5 (Version None)
Quarter: 2010Q2

REPORT INFORMATION
  Report Type: 
  Country: None (occurrence: None)
  Receive Date: 20100624
  Receipt Date: 20080930
  Transmission Date: 20101027
  Serious: No
  Sender: FDA-Public Use
  Company Number: US-PFIZER INC-2008072919

PATIENT
  Sex: Female
  Weight: 67.13 kg

DRUGS (4)
  1. DIFLUCAN [Suspect]
     Indication: GASTROINTESTINAL INFECTION
     Dates: start: 20080101, end: 20080801
  2. DIFLUCAN [Suspect]
     Indication: SKIN INFECTION
  3. DIFLUCAN [Suspect]
     Indication: VAGINAL INFECTION
  4. HUMIRA [Concomitant]

REACTIONS (4)
  - HAEMOGLOBIN DECREASED [None]
  - PHARYNGITIS [None]
  - RED BLOOD CELL SEDIMENTATION RATE INCREASED [None]
  - THROAT IRRITATION [None]
